FAERS Safety Report 10175697 (Version 1)
Quarter: 2014Q2

REPORT INFORMATION
  Report Type: Spontaneous
  Country: US (occurrence: US)
  Receive Date: 20140516
  Receipt Date: 20140516
  Transmission Date: 20141212
  Serious: No
  Sender: FDA-Public Use
  Company Number: US-JNJFOC-20140502841

PATIENT
  Sex: Female

DRUGS (4)
  1. DURAGESIC [Suspect]
     Indication: PAIN
     Route: 062
     Dates: start: 20140504
  2. DURAGESIC [Suspect]
     Indication: PAIN
     Route: 062
     Dates: start: 201311
  3. LYRICA [Concomitant]
     Indication: PRODUCT USED FOR UNKNOWN INDICATION
     Route: 065
  4. VOLTAREN EMULGEL [Concomitant]
     Indication: PAIN
     Route: 065

REACTIONS (5)
  - Drug administered at inappropriate site [Unknown]
  - Product adhesion issue [Unknown]
  - Inappropriate schedule of drug administration [Unknown]
  - Application site dryness [Not Recovered/Not Resolved]
  - Drug ineffective [Recovered/Resolved]
